FAERS Safety Report 22326676 (Version 2)
Quarter: 2024Q2

REPORT INFORMATION
  Report Type: Spontaneous
  Country: US (occurrence: US)
  Receive Date: 20230516
  Receipt Date: 20240531
  Transmission Date: 20240715
  Serious: No
  Sender: FDA-Public Use
  Company Number: US-RADIUS HEALTH INC.-2022US004746

PATIENT
  Age: 62 Year
  Sex: Female

DRUGS (10)
  1. TYMLOS [Suspect]
     Active Substance: ABALOPARATIDE
     Indication: Osteoporosis postmenopausal
     Dosage: 80 MICROGRAM, QD
     Route: 058
     Dates: start: 20220913
  2. RECLAST [Suspect]
     Active Substance: ZOLEDRONIC ACID
     Indication: Product used for unknown indication
     Dosage: UNK
  3. AUBAGIO [Suspect]
     Active Substance: TERIFLUNOMIDE
     Indication: Product used for unknown indication
     Dosage: UNK
     Dates: start: 201705
  4. FISH OIL [Concomitant]
     Active Substance: FISH OIL
     Indication: Product used for unknown indication
  5. FOLIC ACID [Concomitant]
     Active Substance: FOLIC ACID
     Indication: Product used for unknown indication
  6. GABAPENTIN [Concomitant]
     Active Substance: GABAPENTIN
     Indication: Product used for unknown indication
  7. IBUPROFEN [Concomitant]
     Active Substance: IBUPROFEN
     Indication: Product used for unknown indication
  8. VITAMIN D3 [Concomitant]
     Active Substance: CHOLECALCIFEROL
     Indication: Product used for unknown indication
  9. ALLEGRA ALLERGY [Concomitant]
     Active Substance: FEXOFENADINE HYDROCHLORIDE
     Indication: Product used for unknown indication
  10. BIOFLEX [GLUCOSAMINE SULFATE] [Concomitant]
     Indication: Product used for unknown indication

REACTIONS (4)
  - Condition aggravated [Recovering/Resolving]
  - Insomnia [Not Recovered/Not Resolved]
  - Headache [Not Recovered/Not Resolved]
  - Constipation [Not Recovered/Not Resolved]

NARRATIVE: CASE EVENT DATE: 20220901
